FAERS Safety Report 8510038-0 (Version None)
Quarter: 2012Q2

REPORT INFORMATION
  Report Type: 
  Country: None (occurrence: None)
  Receive Date: 20120405
  Receipt Date: 20080917
  Transmission Date: 20120825
  Serious: Yes (Other)
  Sender: FDA-Public Use
  Company Number: PHEH2008US07837

PATIENT
  Age: 54 Year
  Sex: Female

DRUGS (3)
  1. LIPITOR [Concomitant]
  2. LEXAPRO [Concomitant]
  3. RECLAST [Suspect]
     Indication: OSTEOPENIA
     Dosage: INFUSION
     Dates: start: 20080820

REACTIONS (12)
  - MUSCULOSKELETAL STIFFNESS [None]
  - INFLUENZA LIKE ILLNESS [None]
  - PYREXIA [None]
  - BONE PAIN [None]
  - MYALGIA [None]
  - ARTHRALGIA [None]
  - CHEST PAIN [None]
  - HEADACHE [None]
  - OEDEMA PERIPHERAL [None]
  - CHILLS [None]
  - PAIN IN EXTREMITY [None]
  - ERYTHEMA [None]
